FAERS Safety Report 6206769-8 (Version None)
Quarter: 2009Q2

REPORT INFORMATION
  Report Type: 
  Country: None (occurrence: None)
  Receive Date: 20090528
  Receipt Date: 20090507
  Transmission Date: 20091009
  Serious: Yes (Other)
  Sender: FDA-Public Use
  Company Number: DE-BIOGENIDEC-2009BI015973

PATIENT
  Age: 38 Year

DRUGS (2)
  1. AVONEX [Suspect]
     Indication: RELAPSING-REMITTING MULTIPLE SCLEROSIS
     Route: 030
  2. VALPROATE SODIUM [Concomitant]
     Indication: EPILEPSY

REACTIONS (1)
  - STATUS EPILEPTICUS [None]
